FAERS Safety Report 4302810-8 (Version None)
Quarter: 2004Q1

REPORT INFORMATION
  Report Type: 
  Country: None (occurrence: None)
  Receive Date: 20040223
  Receipt Date: 20040223
  Transmission Date: 20041129
  Serious: Yes (Life-Threatening, Hospitalization)
  Sender: FDA-Public Use
  Company Number: None

PATIENT
  Sex: Male
  Weight: 92.9874 kg

DRUGS (1)
  1. BEXTRA [Suspect]

REACTIONS (5)
  - PYREXIA [None]
  - RASH GENERALISED [None]
  - RASH PUSTULAR [None]
  - SWELLING [None]
  - URTICARIA [None]
